FAERS Safety Report 21949228 (Version 1)
Quarter: 2023Q1

REPORT INFORMATION
  Report Type: Spontaneous
  Country: DE (occurrence: DE)
  Receive Date: 20230203
  Receipt Date: 20230203
  Transmission Date: 20230418
  Serious: Yes (Other)
  Sender: FDA-Public Use
  Company Number: None

PATIENT
  Sex: Female
  Weight: 56 kg

DRUGS (2)
  1. FLUOXETINE [Suspect]
     Active Substance: FLUOXETINE HYDROCHLORIDE
     Indication: Obsessive-compulsive disorder
     Dosage: 20 (MG/D )/ MATERNAL
     Dates: start: 20220827, end: 20221207
  2. COMIRNATY [Concomitant]
     Active Substance: TOZINAMERAN
     Indication: COVID-19 immunisation
     Dosage: PATERNAL, 2ND VACCINATION 09/2022 1ST VACCINATION PRECONCEPTIONAL CA. 1?MTH.

REACTIONS (2)
  - Abortion missed [Unknown]
  - Maternal exposure during pregnancy [Unknown]
